FAERS Safety Report 8686575 (Version 2)
Quarter: 2013Q4

REPORT INFORMATION
  Report Type: Spontaneous
  Country: US (occurrence: US)
  Receive Date: 20120726
  Receipt Date: 20131108
  Transmission Date: 20140711
  Serious: Yes (Hospitalization)
  Sender: FDA-Public Use
  Company Number: US-009507513-1207USA005379

PATIENT
  Age: 41 Year
  Sex: Female

DRUGS (7)
  1. ZOCOR [Suspect]
     Dosage: UNK
     Route: 050
  2. CLARITIN [Suspect]
  3. PROPRANOLOL AL [Concomitant]
  4. ASPIRIN [Concomitant]
  5. TYLENOL [Concomitant]
  6. MUCINEX [Concomitant]
  7. FLUTICASONE [Concomitant]

REACTIONS (6)
  - Dizziness [Unknown]
  - Headache [Unknown]
  - Cryptococcal cutaneous infection [Unknown]
  - Granuloma [Unknown]
  - Lung infection [Unknown]
  - Weight decreased [Unknown]
